FAERS Safety Report 8000395-6 (Version None)
Quarter: 2011Q4

REPORT INFORMATION
  Report Type: 
  Country: None (occurrence: None)
  Receive Date: 20111216
  Receipt Date: 20111205
  Transmission Date: 20120403
  Serious: Yes (Disabling, Other)
  Sender: FDA-Public Use
  Company Number: 2011MA015757

PATIENT
  Age: 66 Year
  Sex: Female

DRUGS (2)
  1. DIAZEPAM [Suspect]
  2. ALPRAZOLAM [Suspect]

REACTIONS (17)
  - MULTIPLE INJURIES [None]
  - MYALGIA [None]
  - TOOTHACHE [None]
  - HERPES VIRUS INFECTION [None]
  - EMOTIONAL DISORDER [None]
  - PAIN [None]
  - NERVOUS SYSTEM DISORDER [None]
  - ABSCESS [None]
  - FEELING ABNORMAL [None]
  - AMNESIA [None]
  - PRURITUS [None]
  - ANXIETY [None]
  - NERVOUSNESS [None]
  - DYSPEPSIA [None]
  - SUICIDAL IDEATION [None]
  - VISUAL IMPAIRMENT [None]
  - ARTHRALGIA [None]
